FAERS Safety Report 15504574 (Version 1)
Quarter: 2018Q4

REPORT INFORMATION
  Report Type: Spontaneous
  Country: US (occurrence: US)
  Receive Date: 20181016
  Receipt Date: 20181016
  Transmission Date: 20190205
  Serious: Yes (Other)
  Sender: FDA-Public Use
  Company Number: None

PATIENT
  Sex: Female
  Weight: 48.6 kg

DRUGS (3)
  1. FASLODEX [Concomitant]
     Active Substance: FULVESTRANT
  2. VERZENIO [Suspect]
     Active Substance: ABEMACICLIB
     Indication: NEOPLASM MALIGNANT
     Route: 048
     Dates: start: 20180111, end: 20180622
  3. MULTIVITAMINS [Concomitant]
     Active Substance: VITAMINS

REACTIONS (1)
  - Disease progression [None]
